FAERS Safety Report 16648955 (Version 3)
Quarter: 2022Q2

REPORT INFORMATION
  Report Type: Spontaneous
  Country: US (occurrence: US)
  Receive Date: 20190730
  Receipt Date: 20220425
  Transmission Date: 20220720
  Serious: Yes (Hospitalization)
  Sender: FDA-Public Use
  Company Number: US-TEVA-2019-US-1084128

PATIENT
  Age: 74 Year
  Sex: Female

DRUGS (16)
  1. IBUPROFEN [Suspect]
     Active Substance: IBUPROFEN
     Indication: Radicular pain
     Route: 065
  2. KRILL OIL [Suspect]
     Active Substance: DIETARY SUPPLEMENT\KRILL OIL
     Route: 065
  3. KETOROLAC [Suspect]
     Active Substance: KETOROLAC TROMETHAMINE
     Indication: Musculoskeletal pain
     Route: 030
  4. CARBIDOPA\LEVODOPA [Concomitant]
     Active Substance: CARBIDOPA\LEVODOPA
     Indication: Parkinson^s disease
     Dosage: 25-100MG THREE TIMES DAILY
     Route: 065
  5. ATORVASTATIN [Concomitant]
     Active Substance: ATORVASTATIN
     Route: 065
  6. LOSARTAN [Concomitant]
     Active Substance: LOSARTAN
     Route: 065
  7. SELEGILINE [Concomitant]
     Active Substance: SELEGILINE
     Route: 065
  8. Calcium carbonate/vitamin D2 [Concomitant]
     Dosage: CALCIUM-CARBONATE (1250MG) AND ERGOCALCIFEROL (200U) DAILY
     Route: 065
  9. VITAMINS [Concomitant]
     Active Substance: VITAMINS
     Route: 065
  10. LIDOCAINE [Concomitant]
     Active Substance: LIDOCAINE
     Dosage: SUBCUTANEOUSLY INJECTED IN THE C7-T1 INTER-SPACE
     Route: 058
  11. OMNIPAQUE [Concomitant]
     Active Substance: IOHEXOL
     Indication: Scan with contrast
     Route: 008
  12. PREGABALIN [Concomitant]
     Active Substance: PREGABALIN
     Route: 065
  13. DEXAMETHASONE [Concomitant]
     Active Substance: DEXAMETHASONE
     Route: 008
  14. SODIUM CHLORIDE [Concomitant]
     Active Substance: SODIUM CHLORIDE
     Route: 008
  15. BUPIVACAINE [Concomitant]
     Active Substance: BUPIVACAINE
     Indication: Musculoskeletal pain
     Route: 065
  16. CETIRIZINE [Concomitant]
     Active Substance: CETIRIZINE HYDROCHLORIDE
     Route: 065

REACTIONS (3)
  - Spinal epidural haematoma [Recovered/Resolved]
  - Joint range of motion decreased [Recovered/Resolved]
  - Urinary retention [Recovered/Resolved]
